FAERS Safety Report 17585616 (Version 1)
Quarter: 2020Q1

REPORT INFORMATION
  Report Type: Report from Study
  Country: FR (occurrence: FR)
  Receive Date: 20200326
  Receipt Date: 20200326
  Transmission Date: 20200409
  Serious: Yes (Hospitalization)
  Sender: FDA-Public Use
  Company Number: FR-EISAI MEDICAL RESEARCH-EC-2020-072276

PATIENT
  Age: 62 Year
  Sex: Male
  Weight: 83 kg

DRUGS (19)
  1. PERINDOPRIL [Concomitant]
     Active Substance: PERINDOPRIL
     Dates: start: 20090917
  2. INSULIN [Concomitant]
     Active Substance: INSULIN NOS
  3. FIVASA [Concomitant]
     Dates: start: 20191017
  4. LENVATINIB [Suspect]
     Active Substance: LENVATINIB
     Indication: HEPATOCELLULAR CARCINOMA
     Route: 048
     Dates: start: 20191114, end: 20191120
  5. LENVATINIB [Suspect]
     Active Substance: LENVATINIB
     Route: 048
     Dates: start: 20200206, end: 20200226
  6. KARDEGIC [Concomitant]
     Active Substance: ASPIRIN DL-LYSINE
     Dates: start: 20110114
  7. METFORMIN [Concomitant]
     Active Substance: METFORMIN HYDROCHLORIDE
     Dates: start: 20061110
  8. CHOLURSO [Concomitant]
     Active Substance: URSODIOL
     Dates: start: 20120319
  9. PANTOPRAZOLE [Concomitant]
     Active Substance: PANTOPRAZOLE
     Dates: start: 20030319
  10. TOPALGIC [Concomitant]
     Dates: start: 20200227
  11. PROPRANOLOL [Concomitant]
     Active Substance: PROPRANOLOL HYDROCHLORIDE
     Dates: start: 20150304
  12. METEOSPASMYL [Concomitant]
     Dates: start: 20191017
  13. CODOLIPRANE [Concomitant]
     Active Substance: ACETAMINOPHEN\CODEINE PHOSPHATE
     Dates: start: 20191120
  14. LENVATINIB [Suspect]
     Active Substance: LENVATINIB
     Route: 048
     Dates: start: 20191121, end: 20200205
  15. TARDYFERON [Concomitant]
     Active Substance: FERROUS SULFATE
     Dates: start: 20191113
  16. TOCO [Concomitant]
     Active Substance: .ALPHA.-TOCOPHEROL ACETATE, D-
     Dates: start: 20120319
  17. PEMBROLIZUMAB. [Suspect]
     Active Substance: PEMBROLIZUMAB
     Indication: HEPATOCELLULAR CARCINOMA
     Dates: start: 20191114, end: 20200206
  18. PENTASA [Concomitant]
     Active Substance: MESALAMINE
     Dates: start: 20191017
  19. HUMALOG [Concomitant]
     Active Substance: INSULIN LISPRO
     Dates: start: 20191017

REACTIONS (1)
  - Neutropenia [Not Recovered/Not Resolved]

NARRATIVE: CASE EVENT DATE: 20200316
